FAERS Safety Report 8614069-1 (Version None)
Quarter: 2012Q3

REPORT INFORMATION
  Report Type: 
  Country: None (occurrence: None)
  Receive Date: 20120823
  Receipt Date: 20120810
  Transmission Date: 20120928
  Serious: Yes (Hospitalization, Disabling, Other)
  Sender: FDA-Public Use
  Company Number: US-009507513-1107USA03463

PATIENT

DRUGS (21)
  1. RESLIN TABLETS 25 [Concomitant]
     Indication: INSOMNIA
     Dosage: 100-200
  2. CYMBALTA [Concomitant]
     Indication: FIBROMYALGIA
     Dosage: 120 MG, UNK
  3. FIORINAL [Concomitant]
     Indication: MIGRAINE
  4. FOSAMAX [Suspect]
     Dosage: 70 MG, QW
     Route: 048
     Dates: start: 20070904
  5. FOSAMAX PLUS D [Suspect]
     Indication: OSTEOPENIA
     Dosage: 70 MG, QW
     Route: 048
     Dates: start: 20050715, end: 20050801
  6. FOSAMAX PLUS D [Suspect]
     Dosage: 70 MG, QW
     Route: 048
     Dates: start: 20070110, end: 20070801
  7. IMITREX [Concomitant]
     Indication: MIGRAINE
     Dosage: 100 MG, UNK
  8. CORTICOSTEROIDS (UNSPECIFIED) [Concomitant]
     Dates: start: 20020101, end: 20080201
  9. MK-8797 [Concomitant]
     Indication: SOMNOLENCE
  10. MK-0152 [Concomitant]
     Indication: OEDEMA
     Dosage: 25 MG, PRN
  11. XANAX [Concomitant]
     Dosage: 1 MG, PRN
  12. FOSAMAX [Suspect]
     Dosage: 70 MG, QW
     Route: 048
     Dates: start: 20060418, end: 20061201
  13. FOSAMAX PLUS D [Suspect]
     Dosage: 70 MG, QW
     Route: 048
     Dates: start: 20060327
  14. SINGULAIR [Concomitant]
     Indication: ASTHMA
     Dosage: 10 MG, UNK
     Route: 048
  15. OXYCODONE HCL [Concomitant]
     Indication: PAIN
     Dosage: UNK UNK, PRN
  16. FOSAMAX [Suspect]
     Indication: OSTEOPOROSIS
     Dosage: 70 MG, QW
     Route: 048
     Dates: start: 20020301, end: 20050601
  17. BENTYL [Concomitant]
     Indication: IRRITABLE BOWEL SYNDROME
     Dosage: 20 MG, PRN
  18. FOSAMAX [Suspect]
     Indication: OSTEOPENIA
     Dosage: 70 MG, QW
     Route: 048
     Dates: start: 20050921, end: 20060201
  19. HYDROCODONE [Concomitant]
     Indication: PAIN
     Dosage: UNK UNK, PRN
  20. THERAPY UNSPECIFIED [Concomitant]
     Indication: RHEUMATOID ARTHRITIS
     Dates: start: 20020301
  21. PROZAC [Concomitant]
     Indication: DEPRESSION
     Dosage: 20 MG, UNK

REACTIONS (55)
  - FEMUR FRACTURE [None]
  - DEPRESSION [None]
  - PAIN [None]
  - MYASTHENIA GRAVIS [None]
  - THYROID DISORDER [None]
  - CARPAL TUNNEL SYNDROME [None]
  - HYPERSENSITIVITY [None]
  - ROTATOR CUFF SYNDROME [None]
  - EPISTAXIS [None]
  - ARTHRITIS [None]
  - PNEUMONIA ASPIRATION [None]
  - NERVOUS SYSTEM DISORDER [None]
  - SYNOVIAL CYST [None]
  - HEPATIC CYST [None]
  - NAUSEA [None]
  - MULTIPLE FRACTURES [None]
  - FOLATE DEFICIENCY [None]
  - INSOMNIA [None]
  - RESTLESS LEGS SYNDROME [None]
  - PNEUMONIA [None]
  - CONFUSIONAL STATE [None]
  - AMNESIA [None]
  - BACTERIAL INFECTION [None]
  - NARCOLEPSY [None]
  - FOOT FRACTURE [None]
  - HYPERTENSION [None]
  - NASOPHARYNGITIS [None]
  - ATELECTASIS [None]
  - VOMITING [None]
  - OSTEOPOROSIS [None]
  - PSORIASIS [None]
  - ANAEMIA [None]
  - HYPOKALAEMIA [None]
  - NEUROPATHY PERIPHERAL [None]
  - PALPITATIONS [None]
  - GASTROOESOPHAGEAL REFLUX DISEASE [None]
  - SEROMA [None]
  - BURSITIS [None]
  - FRACTURE NONUNION [None]
  - EYE DISORDER [None]
  - MONOCLONAL GAMMOPATHY [None]
  - CHRONIC SINUSITIS [None]
  - HEADACHE [None]
  - LOW TURNOVER OSTEOPATHY [None]
  - TENSION HEADACHE [None]
  - SLEEP APNOEA SYNDROME [None]
  - AZOTAEMIA [None]
  - FALL [None]
  - ADVERSE DRUG REACTION [None]
  - OESOPHAGEAL DISORDER [None]
  - NASAL CONGESTION [None]
  - NASAL SEPTUM DEVIATION [None]
  - TOXIC ENCEPHALOPATHY [None]
  - RESPIRATORY FAILURE [None]
  - DRY MOUTH [None]
